FAERS Safety Report 15832386 (Version 1)
Quarter: 2018Q4

REPORT INFORMATION
  Report Type: Spontaneous
  Country: US (occurrence: US)
  Receive Date: 20181219
  Receipt Date: 20181219
  Transmission Date: 20190205
  Serious: No
  Sender: FDA-Public Use
  Company Number: None

PATIENT
  Sex: Male

DRUGS (2)
  1. LEVAQUIN [Suspect]
     Active Substance: LEVOFLOXACIN
  2. CIPRO [Suspect]
     Active Substance: CIPROFLOXACIN HYDROCHLORIDE

REACTIONS (9)
  - Intervertebral disc disorder [None]
  - Back pain [None]
  - Intervertebral disc protrusion [None]
  - Scar [None]
  - Small fibre neuropathy [None]
  - Epididymitis [None]
  - Product complaint [None]
  - Nerve root compression [None]
  - Radiculopathy [None]
